FAERS Safety Report 5706055-6 (Version None)
Quarter: 2008Q2

REPORT INFORMATION
  Report Type: 
  Country: None (occurrence: None)
  Receive Date: 20080415
  Receipt Date: 20080403
  Transmission Date: 20081010
  Serious: Yes (Hospitalization, Other)
  Sender: FDA-Public Use
  Company Number: US-PFIZER INC-2008008861

PATIENT
  Sex: Female
  Weight: 47.727 kg

DRUGS (2)
  1. CHANTIX [Suspect]
     Indication: SMOKING CESSATION THERAPY
     Route: 048
  2. DRUG, UNSPECIFIED [Concomitant]

REACTIONS (2)
  - DEPRESSION [None]
  - HIP ARTHROPLASTY [None]
